FAERS Safety Report 15396755 (Version 1)
Quarter: 2018Q3

REPORT INFORMATION
  Report Type: Spontaneous
  Country: CN (occurrence: CN)
  Receive Date: 20180918
  Receipt Date: 20180918
  Transmission Date: 20181010
  Serious: Yes (Hospitalization, Other)
  Sender: FDA-Public Use
  Company Number: CN-SAKK-2018SA253757AA

PATIENT
  Age: 21 Year
  Sex: Female
  Weight: 63 kg

DRUGS (3)
  1. INSULIN ASPART [Concomitant]
     Active Substance: INSULIN ASPART
     Dosage: 13 U AT NOON AND IN THE EVENING
  2. INSULIN GLARGINE [Suspect]
     Active Substance: INSULIN GLARGINE
     Indication: TYPE 1 DIABETES MELLITUS
     Dosage: 15 U AT BEDTIME
     Route: 065
  3. INSULIN ASPART [Concomitant]
     Active Substance: INSULIN ASPART
     Indication: TYPE 1 DIABETES MELLITUS
     Dosage: 12 U IN THE MORNING

REACTIONS (8)
  - Pyrexia [Recovered/Resolved]
  - Lymphadenopathy [Recovering/Resolving]
  - Ketoacidosis [Unknown]
  - Alopecia [Unknown]
  - Chest discomfort [Unknown]
  - Dyspnoea [Unknown]
  - Arthralgia [Recovering/Resolving]
  - Skin exfoliation [Unknown]
